FAERS Safety Report 22079330 (Version 1)
Quarter: 2023Q1

REPORT INFORMATION
  Report Type: Report from Study
  Country: US (occurrence: US)
  Receive Date: 20230309
  Receipt Date: 20230309
  Transmission Date: 20230418
  Serious: Yes (Other)
  Sender: FDA-Public Use
  Company Number: US-BAUSCHBL-2022BNL001234

PATIENT
  Age: 25 Year
  Sex: Male

DRUGS (3)
  1. LOTEMAX SM [Suspect]
     Active Substance: LOTEPREDNOL ETABONATE
     Indication: Postoperative care
     Dosage: EVERY 4 HOURS (POSSIBLY EVERY 2 HOURS WHILE AWAKE)
     Route: 061
     Dates: start: 20201216, end: 20210118
  2. PROLENSA [Concomitant]
     Active Substance: BROMFENAC SODIUM
     Indication: Product used for unknown indication
     Dosage: 0.01
     Route: 065
  3. ARTIFICIAL TEARS [Concomitant]
     Indication: Product used for unknown indication
     Dosage: 30 MIN
     Route: 065

REACTIONS (3)
  - Intraocular pressure increased [Recovering/Resolving]
  - Accidental overdose [Unknown]
  - Incorrect product administration duration [Unknown]

NARRATIVE: CASE EVENT DATE: 20210118
